FAERS Safety Report 12157913 (Version 1)
Quarter: 2016Q1

REPORT INFORMATION
  Report Type: Spontaneous
  Country: US (occurrence: US)
  Receive Date: 20160308
  Receipt Date: 20160308
  Transmission Date: 20160526
  Serious: No
  Sender: FDA-Public Use
  Company Number: US-JNJFOC-20140504874

PATIENT
  Age: 74 Year
  Sex: Female

DRUGS (9)
  1. METFORMIN [Concomitant]
     Active Substance: METFORMIN HYDROCHLORIDE
     Route: 048
  2. TIMOLOL. [Concomitant]
     Active Substance: TIMOLOL
     Indication: GLAUCOMA
  3. MAGNESIUM GLUCONATE [Concomitant]
     Active Substance: MAGNESIUM GLUCONATE
  4. LATANOPROST. [Concomitant]
     Active Substance: LATANOPROST
     Indication: GLAUCOMA
  5. PRAVASTATIN [Concomitant]
     Active Substance: PRAVASTATIN\PRAVASTATIN SODIUM
  6. BIOFLEX [Concomitant]
     Active Substance: GLUCOSAMINE SULFATE
  7. IMBRUVICA [Suspect]
     Active Substance: IBRUTINIB
     Indication: CHRONIC LYMPHOCYTIC LEUKAEMIA
     Route: 048
     Dates: start: 20140414, end: 201411
  8. GLIPIZIDE. [Concomitant]
     Active Substance: GLIPIZIDE
  9. CENTRUM SILVER [Concomitant]
     Active Substance: MINERALS\VITAMINS

REACTIONS (14)
  - Vomiting [Recovered/Resolved]
  - Fatigue [Recovered/Resolved]
  - Contusion [Unknown]
  - Weight decreased [Recovering/Resolving]
  - Skin haemorrhage [Not Recovered/Not Resolved]
  - Platelet count decreased [Unknown]
  - Decreased appetite [Unknown]
  - White blood cell count increased [Unknown]
  - Diarrhoea [Not Recovered/Not Resolved]
  - Rash pruritic [Recovered/Resolved]
  - Nausea [Recovered/Resolved]
  - Chills [Not Recovered/Not Resolved]
  - Asthenia [Recovered/Resolved]
  - Blood blister [Not Recovered/Not Resolved]

NARRATIVE: CASE EVENT DATE: 2014
